FAERS Safety Report 14211751 (Version 4)
Quarter: 2018Q1

REPORT INFORMATION
  Report Type: Report from Study
  Country: US (occurrence: US)
  Receive Date: 20171121
  Receipt Date: 20180222
  Transmission Date: 20180508
  Serious: Yes (Hospitalization)
  Sender: FDA-Public Use
  Company Number: US-ACTELION-A-US2015-116022

PATIENT
  Age: 65 Year
  Sex: Female
  Weight: 59.86 kg

DRUGS (7)
  1. VELETRI [Suspect]
     Active Substance: EPOPROSTENOL
     Dosage: 10 NG/KG, PER MIN
     Route: 042
     Dates: start: 20150331
  2. VELETRI [Suspect]
     Active Substance: EPOPROSTENOL
     Dosage: 20 NG/KG, PER MIN
     Route: 042
  3. VELETRI [Suspect]
     Active Substance: EPOPROSTENOL
     Dosage: 34 NG/KG, PER MIN
     Route: 042
  4. VELETRI [Suspect]
     Active Substance: EPOPROSTENOL
     Indication: PULMONARY HYPERTENSION
     Dosage: 56 NG/KG, PER MIN
     Route: 042
  5. REMODULIN [Suspect]
     Active Substance: TREPROSTINIL
     Indication: PRODUCT USED FOR UNKNOWN INDICATION
     Dosage: UNK
     Route: 065
  6. SILDENAFIL. [Suspect]
     Active Substance: SILDENAFIL
     Indication: PRODUCT USED FOR UNKNOWN INDICATION
     Dosage: UNK, TID
     Route: 048
  7. COUMADIN [Concomitant]
     Active Substance: WARFARIN SODIUM

REACTIONS (32)
  - Pleural effusion [Unknown]
  - Hypotension [Unknown]
  - Myalgia [Not Recovered/Not Resolved]
  - Pain in jaw [Unknown]
  - Pain [Unknown]
  - Thrombosis in device [Unknown]
  - Aspiration pleural cavity [Unknown]
  - Dyspnoea exertional [Unknown]
  - Pulmonary hypertension [Unknown]
  - Catheter site infection [Unknown]
  - Chest discomfort [Unknown]
  - Localised oedema [Unknown]
  - Nausea [Unknown]
  - Catheter site erythema [Unknown]
  - Feeling abnormal [Unknown]
  - Ascites [Unknown]
  - Faeces soft [Unknown]
  - Fluid overload [Unknown]
  - Dyspnoea [Unknown]
  - Clostridium difficile colitis [Unknown]
  - Headache [Recovering/Resolving]
  - Diarrhoea [Unknown]
  - Flushing [Unknown]
  - Influenza [Unknown]
  - Nasopharyngitis [Unknown]
  - Oedema [Unknown]
  - Dyspnoea at rest [Unknown]
  - Palpitations [Unknown]
  - Hot flush [Unknown]
  - Oedema peripheral [Unknown]
  - Malaise [Unknown]
  - Decreased appetite [Unknown]

NARRATIVE: CASE EVENT DATE: 201707
